FAERS Safety Report 24749355 (Version 1)
Quarter: 2024Q4

REPORT INFORMATION
  Report Type: Spontaneous
  Country: US (occurrence: US)
  Receive Date: 20241218
  Receipt Date: 20241218
  Transmission Date: 20250115
  Serious: No
  Sender: PFIZER
  Company Number: US-PFIZER INC-202400196231

PATIENT
  Age: 2 Year
  Sex: Male
  Weight: 13.6 kg

DRUGS (2)
  1. GENOTROPIN [Suspect]
     Active Substance: SOMATROPIN
     Indication: Short stature
     Dosage: 0.4 MG, DAILY
     Dates: start: 202402
  2. GENOTROPIN [Suspect]
     Active Substance: SOMATROPIN
     Indication: Noonan syndrome
     Dosage: 0.4 MG, DAILY
     Dates: start: 20240615

REACTIONS (4)
  - Product formulation issue [Unknown]
  - Device leakage [Unknown]
  - Device issue [Unknown]
  - Product packaging quantity issue [Unknown]
